FAERS Safety Report 25114711 (Version 1)
Quarter: 2025Q1

REPORT INFORMATION
  Report Type: Spontaneous
  Country: US (occurrence: US)
  Receive Date: 20250324
  Receipt Date: 20250324
  Transmission Date: 20250408
  Serious: Yes (Life-Threatening, Hospitalization)
  Sender: DR REDDYS
  Company Number: None

PATIENT
  Age: 84 Year
  Sex: Female

DRUGS (1)
  1. PROPOFOL [Suspect]
     Active Substance: PROPOFOL
     Indication: Anaesthesia
     Route: 042

REACTIONS (4)
  - Unresponsive to stimuli [Recovered/Resolved]
  - Apnoeic attack [Recovered/Resolved]
  - Accidental exposure to product [Recovered/Resolved]
  - Device malfunction [Recovered/Resolved]
